FAERS Safety Report 10222954 (Version 1)
Quarter: 2014Q2

REPORT INFORMATION
  Report Type: Spontaneous
  Country: US (occurrence: US)
  Receive Date: 20140607
  Receipt Date: 20140607
  Transmission Date: 20141212
  Serious: Yes (Death, Other)
  Sender: FDA-Public Use
  Company Number: PHHY2014US066389

PATIENT
  Sex: 0

DRUGS (2)
  1. FLUDARABINE [Suspect]
     Indication: PLASMA CELL MYELOMA
  2. MELPHALAN [Suspect]
     Indication: PLASMA CELL MYELOMA

REACTIONS (2)
  - Multi-organ failure [Fatal]
  - Toxicity to various agents [Unknown]
